FAERS Safety Report 25382931 (Version 1)
Quarter: 2025Q2

REPORT INFORMATION
  Report Type: Spontaneous
  Country: US (occurrence: US)
  Receive Date: 20250602
  Receipt Date: 20250602
  Transmission Date: 20250716
  Serious: Yes (Other)
  Sender: AUROBINDO
  Company Number: US-AUROBINDO-AUR-APL-2022-025431

PATIENT
  Age: 2 Year
  Sex: Male

DRUGS (6)
  1. ARGATROBAN [Suspect]
     Active Substance: ARGATROBAN
     Indication: Heparin-induced thrombocytopenia
     Route: 065
  2. HEPARIN [Concomitant]
     Active Substance: HEPARIN SODIUM
     Indication: Venous thrombosis
     Route: 065
  3. BIVALIRUDIN [Concomitant]
     Active Substance: BIVALIRUDIN
     Indication: Heparin-induced thrombocytopenia
     Route: 065
  4. METHYLPREDNISOLONE [Concomitant]
     Active Substance: METHYLPREDNISOLONE
     Indication: Heparin-induced thrombocytopenia
     Route: 065
  5. RITUXIMAB [Concomitant]
     Active Substance: RITUXIMAB
     Indication: Heparin-induced thrombocytopenia
     Route: 065
  6. WARFARIN [Concomitant]
     Active Substance: WARFARIN
     Indication: Venous thrombosis
     Route: 065

REACTIONS (1)
  - Drug ineffective [Unknown]
